FAERS Safety Report 4569494-5 (Version None)
Quarter: 2005Q1

REPORT INFORMATION
  Report Type: 
  Country: None (occurrence: None)
  Receive Date: 20050201
  Receipt Date: 20050114
  Transmission Date: 20050727
  Serious: No
  Sender: FDA-Public Use
  Company Number: A01200500241

PATIENT
  Age: 91 Year
  Sex: Female

DRUGS (4)
  1. PLAVIX [Suspect]
     Indication: CEREBROVASCULAR ACCIDENT
     Dosage: 75 MG QD; ORAL
     Route: 048
     Dates: start: 19991201
  2. FUROSEMIDE [Concomitant]
  3. ATORVASTATIN CALCIUM [Concomitant]
  4. LANSOPRAZOLE [Concomitant]

REACTIONS (2)
  - ANAEMIA [None]
  - RENAL FAILURE CHRONIC [None]
